FAERS Safety Report 10716630 (Version 1)
Quarter: 2015Q1

REPORT INFORMATION
  Report Type: Spontaneous
  Country: US (occurrence: None)
  Receive Date: 20150115
  Receipt Date: 20150115
  Transmission Date: 20150721
  Serious: Yes (Hospitalization, Other)
  Sender: FDA-Public Use
  Company Number: None

PATIENT
  Age: 62 Year
  Sex: Male
  Weight: 76.2 kg

DRUGS (1)
  1. TAMSULOSIN 0.4MG ACTAVIS PHARMA [Suspect]
     Active Substance: TAMSULOSIN
     Indication: PROSTATITIS
     Dosage: 1 CAPSULE 30 MIN AFTER MEAL  ONCE DAILY
     Dates: start: 20150111, end: 20150112

REACTIONS (9)
  - Chills [None]
  - Nausea [None]
  - Head injury [None]
  - Hypotension [None]
  - Face injury [None]
  - Loss of consciousness [None]
  - Sepsis [None]
  - Nonspecific reaction [None]
  - Neck injury [None]

NARRATIVE: CASE EVENT DATE: 20150113
